FAERS Safety Report 25047839 (Version 5)
Quarter: 2025Q2

REPORT INFORMATION
  Report Type: Spontaneous
  Country: US (occurrence: US)
  Receive Date: 20250306
  Receipt Date: 20250506
  Transmission Date: 20250716
  Serious: Yes (Other)
  Sender: NOVARTIS
  Company Number: US-SANDOZ-SDZ2025US013081

PATIENT
  Age: 64 Year
  Sex: Female

DRUGS (11)
  1. MOXIFLOXACIN [Suspect]
     Active Substance: MOXIFLOXACIN
     Indication: Haemoptysis
     Route: 065
     Dates: start: 20230923, end: 20240408
  2. AZITHROMYCIN [Suspect]
     Active Substance: AZITHROMYCIN
     Indication: Haemoptysis
     Route: 065
     Dates: start: 20230811
  3. AZITHROMYCIN [Suspect]
     Active Substance: AZITHROMYCIN
     Dosage: 500 MG, QD
     Route: 065
  4. LAMPRENE [Suspect]
     Active Substance: CLOFAZIMINE
     Indication: Haemoptysis
     Route: 048
     Dates: start: 202410
  5. LAMPRENE [Suspect]
     Active Substance: CLOFAZIMINE
     Dosage: 100 MG, QD
     Route: 065
  6. RIFAMPIN [Suspect]
     Active Substance: RIFAMPIN
     Indication: Haemoptysis
     Route: 065
     Dates: start: 20230811
  7. RIFAMPIN [Suspect]
     Active Substance: RIFAMPIN
     Dosage: 600 MG, QD
     Route: 065
  8. ETHAMBUTOL [Suspect]
     Active Substance: ETHAMBUTOL HYDROCHLORIDE
     Indication: Haemoptysis
     Route: 065
     Dates: start: 20230811, end: 20230821
  9. ARIKAYCE [Suspect]
     Active Substance: AMIKACIN
     Indication: Haemoptysis
     Route: 042
     Dates: start: 20240506
  10. ARIKAYCE [Suspect]
     Active Substance: AMIKACIN
     Route: 055
     Dates: start: 20240830
  11. ARIKAYCE [Suspect]
     Active Substance: AMIKACIN
     Dosage: UNK, QD
     Route: 055

REACTIONS (7)
  - Mycobacterium avium complex infection [Unknown]
  - Symptom recurrence [Unknown]
  - Tinnitus [Recovered/Resolved]
  - Rash [Recovered/Resolved]
  - Drug resistance [Recovering/Resolving]
  - Haemoptysis [Unknown]
  - Disease recurrence [Unknown]

NARRATIVE: CASE EVENT DATE: 20250209
